FAERS Safety Report 9555010 (Version 1)
Quarter: 2013Q3

REPORT INFORMATION
  Report Type: Spontaneous
  Country: US (occurrence: None)
  Receive Date: 20130913
  Receipt Date: 20130913
  Transmission Date: 20140515
  Serious: Yes (Other)
  Sender: FDA-Public Use
  Company Number: E2B_00000900

PATIENT
  Age: 66 Year
  Sex: Female
  Weight: 71.67 kg

DRUGS (8)
  1. MELOXICAM [Suspect]
     Indication: PAIN
     Route: 048
     Dates: start: 2011, end: 201303
  2. ESTRADIOL TRANSDERMAL SYSTEM (VIVELLE DOT) [Concomitant]
  3. MULTIVITAMIN [Concomitant]
  4. ACETYLSALICYLIC ACID (ASPIRIN) [Concomitant]
  5. METFORMIN HYDROCHLORIDE (GLUMETZA) [Concomitant]
  6. OMEGA-3-ACID ETHYL ESTERS (LOVAZ) [Concomitant]
  7. CALCIUM/VITAMIN D3 [Concomitant]
  8. MAGNESIUM [Concomitant]

REACTIONS (6)
  - Generalised erythema [None]
  - Pain [None]
  - Skin exfoliation [None]
  - Urinary tract infection [None]
  - Pruritus [None]
  - Skin swelling [None]
